FAERS Safety Report 6998975-X (Version None)
Quarter: 2010Q3

REPORT INFORMATION
  Report Type: 
  Country: None (occurrence: None)
  Receive Date: 20100920
  Receipt Date: 20100614
  Transmission Date: 20110219
  Serious: No
  Sender: FDA-Public Use
  Company Number: US-ASTRAZENECA-2010SE22325

PATIENT
  Age: 16991 Day
  Sex: Female
  Weight: 72.6 kg

DRUGS (2)
  1. SEROQUEL XR [Suspect]
     Indication: DEPRESSION
     Route: 048
     Dates: start: 20100429, end: 20100506
  2. SEROQUEL XR [Suspect]
     Indication: SLEEP DISORDER
     Route: 048
     Dates: start: 20100429, end: 20100506

REACTIONS (9)
  - AMNESIA [None]
  - CONSTIPATION [None]
  - COUGH [None]
  - DYSPNOEA [None]
  - HYPERHIDROSIS [None]
  - NASAL OEDEMA [None]
  - NEUROPATHY PERIPHERAL [None]
  - POLLAKIURIA [None]
  - SOMNOLENCE [None]
